FAERS Safety Report 23886051 (Version 1)
Quarter: 2024Q2

REPORT INFORMATION
  Report Type: Report from Study
  Country: CN (occurrence: CN)
  Receive Date: 20240522
  Receipt Date: 20240522
  Transmission Date: 20240716
  Serious: Yes (Other)
  Sender: FDA-Public Use
  Company Number: CN-Merck Healthcare KGaA-2024026482

PATIENT
  Age: 70 Year
  Sex: Male

DRUGS (3)
  1. CETUXIMAB [Suspect]
     Active Substance: CETUXIMAB
     Indication: Colon cancer metastatic
     Dosage: 800 MG, 2/M
     Route: 042
     Dates: start: 20181106, end: 20190226
  2. CETUXIMAB [Suspect]
     Active Substance: CETUXIMAB
     Dosage: 800 MG, 2/M
     Route: 042
     Dates: start: 20190312
  3. CAPECITABINE [Suspect]
     Active Substance: CAPECITABINE
     Indication: Colon cancer metastatic
     Dosage: 2000 MG, UNKNOWN
     Route: 065
     Dates: start: 20190312

REACTIONS (3)
  - Atrial flutter [Unknown]
  - Palmar-plantar erythrodysaesthesia syndrome [Unknown]
  - Off label use [Unknown]

NARRATIVE: CASE EVENT DATE: 20190408
